FAERS Safety Report 19683642 (Version 1)
Quarter: 2021Q3

REPORT INFORMATION
  Report Type: Report from Study
  Country: None (occurrence: US)
  Receive Date: 20210810
  Receipt Date: 20210810
  Transmission Date: 20211014
  Serious: Yes (Hospitalization)
  Sender: FDA-Public Use
  Company Number: US-ABBVIE-21K-163-4029098-00

PATIENT
  Age: 46 Year
  Sex: Female

DRUGS (2)
  1. SKYRIZI [Suspect]
     Active Substance: RISANKIZUMAB-RZAA
     Indication: PSORIASIS
     Route: 058
  2. JANSSEN COVID?19 VACCINE [Suspect]
     Active Substance: AD26.COV2.S
     Indication: COVID-19 IMMUNISATION
     Dosage: JOHNSON AND JOHNSON
     Route: 030
     Dates: start: 202103, end: 202103

REACTIONS (2)
  - Illness [Recovered/Resolved]
  - Arthritis [Not Recovered/Not Resolved]

NARRATIVE: CASE EVENT DATE: 202010
